FAERS Safety Report 5126796-1 (Version None)
Quarter: 2006Q4

REPORT INFORMATION
  Report Type: 
  Country: None (occurrence: None)
  Receive Date: 20061013
  Receipt Date: 20061005
  Transmission Date: 20070319
  Serious: Yes (Death)
  Sender: FDA-Public Use
  Company Number: FR-AVENTIS-200615140EU

PATIENT
  Age: 57 Year
  Sex: Female

DRUGS (6)
  1. INDAPAMIDE [Suspect]
     Indication: HYPERTENSION
     Route: 048
     Dates: start: 20060323, end: 20060627
  2. SERLAIN                            /01011401/ [Concomitant]
     Dates: start: 20060301, end: 20060508
  3. CRESTOR                            /01588601/ [Concomitant]
     Indication: HYPERCHOLESTEROLAEMIA
     Dates: start: 20060424
  4. TEVETEN                            /01347301/ [Concomitant]
     Dates: start: 20060301
  5. PROZAC [Concomitant]
     Dates: start: 20060508
  6. KREDEX [Concomitant]
     Indication: HYPERTENSION
     Dates: start: 20060412

REACTIONS (7)
  - ALCOHOL USE [None]
  - BLOOD CHOLESTEROL INCREASED [None]
  - BLOOD PRESSURE INCREASED [None]
  - DEHYDRATION [None]
  - MALAISE [None]
  - SUDDEN DEATH [None]
  - TORSADE DE POINTES [None]
